FAERS Safety Report 10186709 (Version 8)
Quarter: 2015Q2

REPORT INFORMATION
  Report Type: Report from Study
  Country: GB (occurrence: GB)
  Receive Date: 20140521
  Receipt Date: 20150512
  Transmission Date: 20150821
  Serious: Yes (Hospitalization)
  Sender: FDA-Public Use
  Company Number: PHHO2014GB007095

PATIENT
  Age: 67 Year
  Sex: Male
  Weight: 99.6 kg

DRUGS (19)
  1. BISOPROLOL FUMARATE. [Suspect]
     Active Substance: BISOPROLOL FUMARATE
     Indication: PRODUCT USED FOR UNKNOWN INDICATION
     Dosage: 5 MG, QD
     Route: 048
  2. LUCENTIS [Suspect]
     Active Substance: RANIBIZUMAB
     Dosage: CODE NOT BROKEN
     Route: 031
     Dates: start: 20140617
  3. BLINDED NO TREATMENT RECEIVED [Suspect]
     Active Substance: UNSPECIFIED INGREDIENT
     Dosage: CODE NOT BROKEN
     Route: 031
     Dates: start: 20141212
  4. PLACEBO [Suspect]
     Active Substance: UNSPECIFIED INGREDIENT
     Dosage: CODE NOT BROKEN
     Route: 031
     Dates: start: 20141212
  5. LUCENTIS [Suspect]
     Active Substance: RANIBIZUMAB
     Indication: VISUAL IMPAIRMENT
     Dosage: CODE NOT BROKEN
     Route: 031
     Dates: start: 20140409
  6. PLACEBO [Suspect]
     Active Substance: UNSPECIFIED INGREDIENT
     Dosage: CODE NOT BROKEN
     Route: 031
     Dates: start: 20140617
  7. PLACEBO [Suspect]
     Active Substance: UNSPECIFIED INGREDIENT
     Dosage: CODE NOT BROKEN
     Route: 031
     Dates: start: 20150106
  8. BLINDED NO TREATMENT RECEIVED [Suspect]
     Active Substance: UNSPECIFIED INGREDIENT
     Dosage: CODE NOT BROKEN
     Route: 031
     Dates: start: 20150203, end: 20150203
  9. LUCENTIS [Suspect]
     Active Substance: RANIBIZUMAB
     Dosage: CODE NOT BROKEN
     Route: 031
     Dates: start: 20150203, end: 20150203
  10. PLACEBO [Suspect]
     Active Substance: UNSPECIFIED INGREDIENT
     Dosage: CODE NOT BROKEN
     Route: 031
     Dates: start: 20140807
  11. LUCENTIS [Suspect]
     Active Substance: RANIBIZUMAB
     Dosage: CODE NOT BROKEN
     Route: 031
     Dates: start: 20150106
  12. BLINDED NO TREATMENT RECEIVED [Suspect]
     Active Substance: UNSPECIFIED INGREDIENT
     Indication: VISUAL IMPAIRMENT
     Dosage: CODE NOT BROKEN
     Route: 031
     Dates: start: 20140409
  13. LUCENTIS [Suspect]
     Active Substance: RANIBIZUMAB
     Dosage: CODE NOT BROKEN
     Route: 031
     Dates: start: 20140807
  14. BLINDED NO TREATMENT RECEIVED [Suspect]
     Active Substance: UNSPECIFIED INGREDIENT
     Dosage: CODE NOT BROKEN
     Route: 031
     Dates: start: 20140807
  15. PLACEBO [Suspect]
     Active Substance: UNSPECIFIED INGREDIENT
     Indication: VISUAL IMPAIRMENT
     Dosage: CODE NOT BROKEN
     Route: 031
     Dates: start: 20140409
  16. LUCENTIS [Suspect]
     Active Substance: RANIBIZUMAB
     Dosage: CODE NOT BROKEN
     Route: 031
     Dates: start: 20141212
  17. BLINDED NO TREATMENT RECEIVED [Suspect]
     Active Substance: UNSPECIFIED INGREDIENT
     Dosage: CODE NOT BROKEN
     Route: 031
     Dates: start: 20150106
  18. PLACEBO [Suspect]
     Active Substance: UNSPECIFIED INGREDIENT
     Dosage: CODE NOT BROKEN
     Route: 031
     Dates: start: 20150203, end: 20150203
  19. BLINDED NO TREATMENT RECEIVED [Suspect]
     Active Substance: UNSPECIFIED INGREDIENT
     Dosage: CODE NOT BROKEN
     Route: 031
     Dates: start: 20140617

REACTIONS (3)
  - Pneumothorax [Recovered/Resolved]
  - Pneumonia [Recovered/Resolved]
  - Chronic obstructive pulmonary disease [Recovering/Resolving]

NARRATIVE: CASE EVENT DATE: 20140502
